FAERS Safety Report 7405580-X (Version None)
Quarter: 2011Q2

REPORT INFORMATION
  Report Type: 
  Country: None (occurrence: None)
  Receive Date: 20110411
  Receipt Date: 20110329
  Transmission Date: 20111010
  Serious: Yes (Other)
  Sender: FDA-Public Use
  Company Number: PHHY2010NL70759

PATIENT
  Age: 38 Year
  Sex: Female

DRUGS (1)
  1. CLOZAPINE [Suspect]
     Indication: SCHIZOPHRENIA
     Dosage: UNK

REACTIONS (5)
  - DYSLIPIDAEMIA [None]
  - FATIGUE [None]
  - DIABETES MELLITUS [None]
  - DRY MOUTH [None]
  - WEIGHT INCREASED [None]
